FAERS Safety Report 7711828 (Version 2)
Quarter: 2013Q2

REPORT INFORMATION
  Report Type: Report from Study
  Country: DE (occurrence: DE)
  Receive Date: 20101215
  Receipt Date: 20130424
  Transmission Date: 20140414
  Serious: Yes (Death, Hospitalization, Other)
  Sender: FDA-Public Use
  Company Number: DE-ROCHE-736079

PATIENT
  Age: 57 Year
  Sex: Male
  Weight: 77 kg

DRUGS (8)
  1. BEVACIZUMAB [Suspect]
     Indication: NON-SMALL CELL LUNG CANCER
     Dosage: LAST DOSE PRIOR TO EVENT ON 28/SEP/2010
     Route: 042
     Dates: start: 20091203
  2. BEVACIZUMAB [Suspect]
     Route: 042
     Dates: start: 20100715, end: 20101118
  3. PACLITAXEL [Suspect]
     Indication: NON-SMALL CELL LUNG CANCER
     Dosage: LAST DOSE PRIOR TO EVENT ON 28/SEP/2010
     Route: 042
     Dates: start: 20091005
  4. PACLITAXEL [Suspect]
     Route: 042
     Dates: start: 20100107
  5. PACLITAXEL [Suspect]
     Route: 042
     Dates: start: 20100715
  6. OXALIPLATIN [Suspect]
     Indication: NON-SMALL CELL LUNG CANCER
     Dosage: LAST DOSE PRIOR TO EVENT 28/SEP/2010
     Route: 042
     Dates: start: 20100715
  7. CARBOPLATIN [Concomitant]
     Indication: NON-SMALL CELL LUNG CANCER
     Route: 042
     Dates: start: 20091005
  8. CARBOPLATIN [Concomitant]
     Dosage: AUC 6
     Route: 042
     Dates: start: 20100107

REACTIONS (4)
  - Sepsis [Recovered/Resolved]
  - Malignant neoplasm progression [Fatal]
  - Pancytopenia [Recovering/Resolving]
  - Mucosal inflammation [Recovering/Resolving]
